FAERS Safety Report 23062566 (Version 3)
Quarter: 2023Q4

REPORT INFORMATION
  Report Type: Spontaneous
  Country: NO (occurrence: NO)
  Receive Date: 20231013
  Receipt Date: 20231219
  Transmission Date: 20240110
  Serious: Yes (Other)
  Sender: FDA-Public Use
  Company Number: NO-ALKABELLO A/S-2023AA003248

PATIENT

DRUGS (1)
  1. GRAZAX [Suspect]
     Active Substance: PHLEUM PRATENSE POLLEN
     Indication: Hypersensitivity
     Dosage: 75000 SQ-T
     Route: 060
     Dates: start: 20230830, end: 20230902

REACTIONS (3)
  - Ear swelling [Recovered/Resolved]
  - External ear pain [Recovered/Resolved]
  - Otitis externa [Recovered/Resolved]

NARRATIVE: CASE EVENT DATE: 20230902
